FAERS Safety Report 5040558-5 (Version None)
Quarter: 2006Q2

REPORT INFORMATION
  Report Type: 
  Country: None (occurrence: None)
  Receive Date: 20060630
  Receipt Date: 20060619
  Transmission Date: 20061013
  Serious: Yes (Hospitalization)
  Sender: FDA-Public Use
  Company Number: JP-ROCHE-451978

PATIENT
  Age: 31 Year
  Sex: Female

DRUGS (5)
  1. HORIZON [Suspect]
     Indication: DRUG USE FOR UNKNOWN INDICATION
     Route: 048
     Dates: start: 20020715
  2. ACCENON [Suspect]
     Indication: DRUG USE FOR UNKNOWN INDICATION
     Route: 048
     Dates: start: 20060519, end: 20060531
  3. ALEVIATIN [Concomitant]
     Route: 048
     Dates: start: 19910615
  4. MENDON [Concomitant]
     Route: 048
     Dates: start: 20020815
  5. LEUCON [Concomitant]
     Route: 048
     Dates: start: 20010615

REACTIONS (1)
  - LYMPHADENITIS [None]
